FAERS Safety Report 5955035-4 (Version None)
Quarter: 2008Q4

REPORT INFORMATION
  Report Type: 
  Country: None (occurrence: None)
  Receive Date: 20081117
  Receipt Date: 20081111
  Transmission Date: 20090506
  Serious: Yes (Hospitalization)
  Sender: FDA-Public Use
  Company Number: A0756837A

PATIENT
  Age: 79 Year
  Sex: Female

DRUGS (3)
  1. VALTREX [Suspect]
     Indication: HERPES ZOSTER
     Route: 065
     Dates: start: 20081021
  2. REQUIP [Suspect]
  3. MICARDIS [Suspect]
     Indication: PARKINSON'S DISEASE
     Dosage: .25MG VARIABLE DOSE
     Route: 048
     Dates: start: 20030101

REACTIONS (8)
  - DRUG HYPERSENSITIVITY [None]
  - FALL [None]
  - FEMUR FRACTURE [None]
  - FRACTURE [None]
  - HERPES ZOSTER [None]
  - MUSCULAR WEAKNESS [None]
  - MYOCARDIAL INFARCTION [None]
  - RESTLESSNESS [None]
